FAERS Safety Report 13523199 (Version 1)
Quarter: 2017Q2

REPORT INFORMATION
  Report Type: Spontaneous
  Country: DE (occurrence: DE)
  Receive Date: 20170508
  Receipt Date: 20170508
  Transmission Date: 20170830
  Serious: Yes (Life-Threatening, Hospitalization, Other)
  Sender: FDA-Public Use
  Company Number: DE-MYLANLABS-2017M1027129

PATIENT

DRUGS (11)
  1. METFORMIN [Suspect]
     Active Substance: METFORMIN HYDROCHLORIDE
     Indication: TYPE 2 DIABETES MELLITUS
     Dosage: DAILY DOSE: 2000 MG MILLGRAM(S) EVERY DAYS
     Route: 048
     Dates: end: 20160408
  2. REPAGLINID [Concomitant]
     Active Substance: REPAGLINIDE
     Dosage: DAILY DOSE: 3 MG MILLGRAM(S) EVERY DAYS
  3. ASS 100 [Concomitant]
     Active Substance: ASPIRIN
     Dosage: DAILY DOSE: 100 MG MILLGRAM(S) EVERY DAYS
  4. NOVAMINSULFON [Concomitant]
     Active Substance: METAMIZOLE
     Dosage: AS NEEDED
  5. PRAVASTATIN. [Concomitant]
     Active Substance: PRAVASTATIN
     Dosage: DAILY DOSE: 40 MG MILLGRAM(S) EVERY DAYS
  6. ESIDRIX [Concomitant]
     Active Substance: HYDROCHLOROTHIAZIDE
     Dosage: 1-0-0
  7. RAMIPRIL + HIDROCLOROTIAZIDA [Concomitant]
     Active Substance: HYDROCHLOROTHIAZIDE\RAMIPRIL
     Dosage: DAILY DOSE: 1 DF DOSAGE FORM EVERY DAYS
  8. IBUPROFEN. [Concomitant]
     Active Substance: IBUPROFEN
     Dosage: AS NEEDED
  9. MAGNESIUM [Concomitant]
     Active Substance: MAGNESIUM
     Dosage: 0-0-1
  10. LIMPTAR [Concomitant]
     Active Substance: AMINOPHYLLINE\QUININE SULFATE
     Dosage: 0-0-1
  11. SALBUTAMOL [Concomitant]
     Active Substance: ALBUTEROL
     Dosage: 1-0-1 AS NEEDED

REACTIONS (3)
  - Lactic acidosis [Recovering/Resolving]
  - Hypoglycaemia [Recovering/Resolving]
  - Toxicity to various agents [Recovering/Resolving]

NARRATIVE: CASE EVENT DATE: 20160408
